FAERS Safety Report 6127280-9 (Version None)
Quarter: 2009Q1

REPORT INFORMATION
  Report Type: 
  Country: None (occurrence: None)
  Receive Date: 20090319
  Receipt Date: 20090305
  Transmission Date: 20090719
  Serious: Yes (Hospitalization)
  Sender: FDA-Public Use
  Company Number: 02100-JPN-07-0254

PATIENT
  Age: 73 Year
  Sex: Male

DRUGS (16)
  1. CLOPIDOGREL [Suspect]
     Indication: CEREBRAL INFARCTION
     Dosage: 75 MG, DAILY DOSE ORAL
     Route: 048
     Dates: start: 20070228
  2. CHOLINE ALFOSCERATE (CHOLINE ALFOSCERATE) [Concomitant]
  3. SODIUM CHLORIDE [Concomitant]
  4. BIOTIN (BIOTIN) INJECTION [Concomitant]
  5. CYANOCABALAMINE (CYANOCABALAMINE) [Concomitant]
  6. DEXPANTHENOL (DEXPANTHENOL) INJECTION [Concomitant]
  7. NICOTINAMIDE (NICOTINAMIDE) INJECTION [Concomitant]
  8. PYRIDOXINE HYDROCHLORIDE (PYRIDOXINE HYDROCHLORIDE) INJECTION [Concomitant]
  9. RIBOFLAVIN SODIUM PHOSPHATE (RIBOFLAVIN SODIUM PHOSPHATE) INJECTION [Concomitant]
  10. THIAMINE (THIAMINE) INJECTION [Concomitant]
  11. 0.9% SODIUM CHLORIDE (0.9% SODIUM CHLORIDE) INJECTION [Concomitant]
  12. ASPIRIN ENTERIC COATED (ASPIRIN ENTERIC COATED) [Concomitant]
  13. ITOPRIDE (ITOPRIDE) [Concomitant]
  14. CELECOXIB [Concomitant]
  15. SODIUM HYALURONATE (SODIUM HYALURONATE) [Concomitant]
  16. OXIRACETAM (OXIRACETAM) [Concomitant]

REACTIONS (4)
  - ALCOHOL POISONING [None]
  - FALL [None]
  - MOVEMENT DISORDER [None]
  - MUSCULAR WEAKNESS [None]
